FAERS Safety Report 6377455-9 (Version None)
Quarter: 2009Q3

REPORT INFORMATION
  Report Type: 
  Country: None (occurrence: None)
  Receive Date: 20090925
  Receipt Date: 20090914
  Transmission Date: 20100115
  Serious: Yes (Other)
  Sender: FDA-Public Use
  Company Number: IT-ELI_LILLY_AND_COMPANY-IT200909003062

PATIENT
  Age: 50 Year
  Sex: Male

DRUGS (2)
  1. CIALIS [Suspect]
     Indication: ERECTILE DYSFUNCTION
     Dosage: 20 MG, UNKNOWN
     Route: 065
  2. ELAZOR [Interacting]
     Indication: ONYCHOMYCOSIS
     Dosage: 300 MG, WEEKLY (1/W)

REACTIONS (2)
  - DRUG INTERACTION [None]
  - LYMPHANGITIS [None]
